FAERS Safety Report 5602619-9 (Version None)
Quarter: 2008Q1

REPORT INFORMATION
  Report Type: 
  Country: None (occurrence: None)
  Receive Date: 20080125
  Receipt Date: 20080116
  Transmission Date: 20080703
  Serious: Yes (Hospitalization, Other)
  Sender: FDA-Public Use
  Company Number: FR-ROCHE-506510

PATIENT
  Age: 25 Year
  Sex: Male
  Weight: 54.6 kg

DRUGS (20)
  1. MYCOPHENOLATE MOFETIL [Suspect]
     Route: 048
     Dates: start: 20070620
  2. MYCOPHENOLATE MOFETIL [Suspect]
     Route: 048
  3. MYCOPHENOLATE MOFETIL [Suspect]
     Dosage: DOSE REDUCED.
     Route: 048
     Dates: start: 20071010, end: 20071018
  4. ROVALCYTE [Suspect]
     Indication: DRUG USE FOR UNKNOWN INDICATION
     Route: 065
     Dates: start: 20070621
  5. ROVALCYTE [Suspect]
     Route: 065
     Dates: end: 20071011
  6. BACTRIM [Suspect]
     Indication: DRUG USE FOR UNKNOWN INDICATION
     Route: 065
     Dates: start: 20070621, end: 20070920
  7. NEORAL [Concomitant]
     Dates: start: 20070620
  8. NEORAL [Concomitant]
  9. MOPRAL [Concomitant]
     Dates: start: 20070621
  10. OFLOCET [Concomitant]
     Dates: start: 20070625
  11. FOLINORAL [Concomitant]
     Dates: start: 20070625
  12. ATENOLOL [Concomitant]
     Dates: start: 20070724
  13. TRIFLUCAN [Concomitant]
     Dates: start: 20070814
  14. VALACYCLOVIR [Concomitant]
     Dosage: TDD REPORTED AS 1500 X3/DAY.
     Dates: start: 20071017
  15. AMOCILLIN [Concomitant]
     Dates: start: 20070821, end: 20070828
  16. CLAVULANATE POTASSIUM [Concomitant]
     Dates: start: 20070821, end: 20070828
  17. SODIUM CHLORIDE INJ [Concomitant]
     Dates: start: 20070904
  18. SODIUM CHLORIDE INJ [Concomitant]
     Dates: start: 20070911
  19. SODIUM CARBONATE [Concomitant]
     Dates: start: 20070911
  20. LIDOCAINE [Concomitant]
     Dosage: TDD REPORTED AS THREE TUBES DAILY.
     Dates: start: 20070911

REACTIONS (5)
  - NEUTROPENIA [None]
  - RENAL FAILURE ACUTE [None]
  - TONSILLAR HYPERTROPHY [None]
  - TRANSPLANT REJECTION [None]
  - VIRAL INFECTION [None]
